FAERS Safety Report 5171147-X (Version None)
Quarter: 2006Q4

REPORT INFORMATION
  Report Type: 
  Country: None (occurrence: None)
  Receive Date: 20061213
  Receipt Date: 20060927
  Transmission Date: 20070319
  Serious: Yes (Hospitalization)
  Sender: FDA-Public Use
  Company Number: ZA-BRISTOL-MYERS SQUIBB COMPANY-13524095

PATIENT
  Age: 80 Year
  Sex: Male
  Weight: 85 kg

DRUGS (18)
  1. IRBESARTAN [Suspect]
     Indication: HYPERTENSION
     Dates: start: 20031201
  2. BLINDED: PLACEBO [Suspect]
     Indication: HYPERTENSION
     Dates: start: 20031201
  3. WARFARIN SODIUM [Suspect]
     Indication: PROPHYLAXIS
     Dates: start: 20031201
  4. DIGOXIN [Concomitant]
  5. DOBUTREX [Concomitant]
  6. DIURETIC [Concomitant]
  7. BETA BLOCKER [Concomitant]
  8. NEXIUM [Concomitant]
  9. PERINDOPRIL ERBUMINE [Concomitant]
  10. LANOXIN [Concomitant]
  11. UNAT [Concomitant]
  12. CARLOC [Concomitant]
  13. LASIX [Concomitant]
  14. VOLUVEN [Concomitant]
  15. DOBUTREX [Concomitant]
  16. SOLU-CORTEF [Concomitant]
  17. MEROPENEM [Concomitant]
  18. TEICOPLANIN [Concomitant]

REACTIONS (3)
  - ARTERIOVENOUS FISTULA OPERATION [None]
  - RENAL FAILURE [None]
  - SEPSIS [None]
